FAERS Safety Report 22108279 (Version 3)
Quarter: 2024Q1

REPORT INFORMATION
  Report Type: Report from Study
  Country: US (occurrence: US)
  Receive Date: 20230317
  Receipt Date: 20240223
  Transmission Date: 20240409
  Serious: Yes (Other)
  Sender: FDA-Public Use
  Company Number: US-UCBSA-2022061330

PATIENT
  Age: 15 Year
  Sex: Male
  Weight: 51.8 kg

DRUGS (4)
  1. FINTEPLA [Suspect]
     Active Substance: FENFLURAMINE
     Indication: Severe myoclonic epilepsy of infancy
     Dosage: 6 MILLILITER, 2X/DAY (BID)
     Dates: start: 2022
  2. FINTEPLA [Suspect]
     Active Substance: FENFLURAMINE
     Indication: Lennox-Gastaut syndrome
     Dosage: 6 MILLILITER, 2X/DAY (BID)
  3. FINTEPLA [Suspect]
     Active Substance: FENFLURAMINE
     Dosage: 6 MILLIGRAM, 2X/DAY (BID)
     Dates: start: 20220606
  4. FINTEPLA [Suspect]
     Active Substance: FENFLURAMINE
     Dosage: 5ML BID FOR 7 DAYS, 4ML BID FOR 7 DAYS, 3ML BID FOR 7 DAYS, 2ML BID FOR  DAYS, 1ML BID FOR 7 DAYS, 1
     Route: 048
     Dates: start: 2022, end: 20230731

REACTIONS (4)
  - Seizure [Not Recovered/Not Resolved]
  - Tooth infection [Recovered/Resolved]
  - Weight decreased [Not Recovered/Not Resolved]
  - Drug ineffective [Unknown]

NARRATIVE: CASE EVENT DATE: 20220607
